FAERS Safety Report 8357091-5 (Version None)
Quarter: 2012Q2

REPORT INFORMATION
  Report Type: 
  Country: None (occurrence: None)
  Receive Date: 20120514
  Receipt Date: 20120509
  Transmission Date: 20120825
  Serious: Yes (Hospitalization)
  Sender: FDA-Public Use
  Company Number: US-BAYER-2012-045469

PATIENT
  Age: 22 Year
  Sex: Female
  Weight: 53.515 kg

DRUGS (7)
  1. TOPAMAX [Concomitant]
     Dosage: 50MG TWICE DAILY
     Route: 048
  2. DIAZEPAM [Concomitant]
     Dosage: 2 MG, UNK
     Route: 048
  3. METHOCARBAMOL [Concomitant]
     Dosage: 10 MG, UNK
     Route: 048
  4. CEPHALEXIN [Concomitant]
     Dosage: 500 MG, UNK
     Route: 048
  5. HYDROCODONE BITARTRATE [Concomitant]
     Dosage: 7.5/500 MG
     Route: 048
  6. YAZ [Suspect]
     Dosage: UNK
     Dates: end: 20100701
  7. ONDANSETRON [Concomitant]
     Dosage: 4 MG, UNK
     Route: 048

REACTIONS (6)
  - PULMONARY EMBOLISM [None]
  - PAIN [None]
  - INJURY [None]
  - GENERAL PHYSICAL HEALTH DETERIORATION [None]
  - EMOTIONAL DISTRESS [None]
  - ANXIETY [None]
